FAERS Safety Report 9619833 (Version 3)
Quarter: 2013Q4

REPORT INFORMATION
  Report Type: Report from Study
  Country: JP (occurrence: JP)
  Receive Date: 20131014
  Receipt Date: 20131028
  Transmission Date: 20140711
  Serious: Yes (Life-Threatening, Disabling)
  Sender: FDA-Public Use
  Company Number: JP-CELGENEUS-087-50794-13102142

PATIENT
  Age: 74 Year
  Sex: Male
  Weight: 57 kg

DRUGS (31)
  1. VIDAZA [Suspect]
     Indication: MYELODYSPLASTIC SYNDROME
     Dosage: 75 MILLIGRAM/SQ. METER
     Route: 041
     Dates: start: 20110829, end: 20110902
  2. VIDAZA [Suspect]
     Dosage: 75 MILLIGRAM/SQ. METER
     Route: 041
     Dates: start: 20110926, end: 20110930
  3. VIDAZA [Suspect]
     Dosage: 75 MILLIGRAM/SQ. METER
     Route: 065
     Dates: start: 20111031, end: 20111104
  4. VIDAZA [Suspect]
     Dosage: 37.5 MILLIGRAM/SQ. METER
     Route: 065
     Dates: start: 20111212, end: 20111216
  5. VIDAZA [Suspect]
     Dosage: 37.5 MILLIGRAM/SQ. METER
     Route: 065
     Dates: start: 20120213, end: 20120213
  6. NASEA [Concomitant]
     Indication: PRODUCT USED FOR UNKNOWN INDICATION
     Route: 065
     Dates: start: 20110829, end: 20110902
  7. NASEA [Concomitant]
     Route: 065
     Dates: start: 20110926, end: 20110930
  8. NASEA [Concomitant]
     Route: 065
     Dates: start: 20111031, end: 20111104
  9. NASEA [Concomitant]
     Route: 065
     Dates: start: 20111212, end: 20111216
  10. NASEA [Concomitant]
     Route: 065
     Dates: start: 20120213, end: 20120213
  11. GRAN [Concomitant]
     Indication: PRODUCT USED FOR UNKNOWN INDICATION
     Route: 065
     Dates: start: 20110903, end: 20110905
  12. GRAN [Concomitant]
     Route: 065
     Dates: start: 20110909, end: 20110915
  13. GRAN [Concomitant]
     Route: 065
     Dates: start: 20111105, end: 20111106
  14. GRAN [Concomitant]
     Route: 065
     Dates: start: 20111116, end: 20120213
  15. LASIX [Concomitant]
     Indication: PRODUCT USED FOR UNKNOWN INDICATION
     Route: 065
     Dates: start: 20110925, end: 20111001
  16. LASIX [Concomitant]
     Route: 065
     Dates: start: 20111008, end: 20111018
  17. LASIX [Concomitant]
     Route: 065
     Dates: start: 20111101, end: 20111106
  18. LASIX [Concomitant]
     Route: 065
     Dates: start: 20111112, end: 20111120
  19. LASIX [Concomitant]
     Route: 065
     Dates: start: 20111213, end: 20111217
  20. NEUTROGIN [Concomitant]
     Indication: PRODUCT USED FOR UNKNOWN INDICATION
     Route: 065
     Dates: start: 20111110, end: 20111111
  21. NEUTROGIN [Concomitant]
     Route: 065
     Dates: start: 20111218, end: 20111220
  22. NEUTROGIN [Concomitant]
     Route: 065
     Dates: start: 20120120, end: 20120122
  23. FUNGUARD [Concomitant]
     Indication: PRODUCT USED FOR UNKNOWN INDICATION
     Route: 065
     Dates: start: 20111212, end: 20111216
  24. SULBACTAM-AMPICILLIN [Concomitant]
     Indication: PRODUCT USED FOR UNKNOWN INDICATION
     Route: 065
     Dates: start: 20120114, end: 20120118
  25. FILGRASTIM [Concomitant]
     Indication: PRODUCT USED FOR UNKNOWN INDICATION
     Dosage: 75 MICROGRAM
     Route: 065
     Dates: start: 20110903, end: 20110905
  26. FILGRASTIM [Concomitant]
     Dosage: 75 MICROGRAM
     Route: 065
     Dates: start: 20110909, end: 20110915
  27. FILGRASTIM [Concomitant]
     Dosage: 75 MICROGRAM
     Route: 065
     Dates: start: 20111105, end: 20111106
  28. FILGRASTIM [Concomitant]
     Route: 065
     Dates: start: 20111116, end: 20120213
  29. LENOGRASTIM [Concomitant]
     Indication: PRODUCT USED FOR UNKNOWN INDICATION
     Dosage: 100 MICROGRAM
     Route: 065
     Dates: start: 20111110, end: 20111111
  30. LENOGRASTIM [Concomitant]
     Dosage: 250 MICROGRAM
     Route: 065
     Dates: start: 20111218, end: 20111220
  31. LENOGRASTIM [Concomitant]
     Dosage: 100 MICROGRAM
     Route: 065
     Dates: start: 20120120, end: 20120122

REACTIONS (3)
  - Agranulocytosis [Recovered/Resolved]
  - Systemic mycosis [Recovered/Resolved]
  - Sepsis [Recovered/Resolved]
